FAERS Safety Report 4897982-0 (Version None)
Quarter: 2006Q1

REPORT INFORMATION
  Report Type: 
  Country: None (occurrence: None)
  Receive Date: 20060201
  Receipt Date: 20050818
  Transmission Date: 20060701
  Serious: Yes (Hospitalization)
  Sender: FDA-Public Use
  Company Number: FR-SANOFI-SYNTHELABO-A02200502239

PATIENT
  Age: 64 Year
  Sex: Female

DRUGS (16)
  1. PLAVIX [Interacting]
     Indication: ARTERIAL STENOSIS
     Route: 048
     Dates: start: 20050218, end: 20050303
  2. DEROXAT [Interacting]
     Indication: DYSTHYMIC DISORDER
     Route: 048
     Dates: end: 20050308
  3. RIVOTRIL [Suspect]
     Indication: NEUROPATHY PERIPHERAL
     Route: 048
     Dates: end: 20050304
  4. TRIATEC [Suspect]
     Indication: HYPERTENSION
     Route: 048
     Dates: end: 20050307
  5. VASTEN [Suspect]
     Indication: HYPERLIPIDAEMIA
     Route: 048
     Dates: end: 20050304
  6. LOXEN [Concomitant]
     Indication: ESSENTIAL HYPERTENSION
     Route: 048
  7. DEROXAT [Concomitant]
     Route: 048
     Dates: end: 20050308
  8. UN-ALFA [Concomitant]
     Indication: RENAL FAILURE
     Route: 048
     Dates: end: 20050311
  9. FUROSEMIDE [Concomitant]
     Indication: DRUG USE FOR UNKNOWN INDICATION
     Route: 048
  10. EUPRESSYL [Concomitant]
     Indication: DRUG USE FOR UNKNOWN INDICATION
     Route: 048
  11. MIXTARD HUMAN 70/30 [Concomitant]
     Dosage: 18 IU ON THE MORNING AND 12 IU ON THE EVENING
     Route: 058
  12. TEMESTA [Concomitant]
     Route: 048
  13. NOCTAMIDE [Concomitant]
     Indication: DRUG USE FOR UNKNOWN INDICATION
     Route: 048
  14. LEVOTHYROX [Concomitant]
     Indication: HYPOTHYROIDISM
     Route: 048
  15. INIPOMP [Concomitant]
     Indication: DRUG USE FOR UNKNOWN INDICATION
     Route: 048
  16. PARACETAMOL [Concomitant]
     Indication: DRUG USE FOR UNKNOWN INDICATION
     Route: 048

REACTIONS (7)
  - ANAEMIA [None]
  - DRUG INTERACTION [None]
  - ECCHYMOSIS [None]
  - MUSCLE HAEMORRHAGE [None]
  - MUSCLE INJURY [None]
  - RHABDOMYOLYSIS [None]
  - WALKING AID USER [None]
